FAERS Safety Report 6861843-8 (Version None)
Quarter: 2010Q3

REPORT INFORMATION
  Report Type: 
  Country: None (occurrence: None)
  Receive Date: 20100721
  Receipt Date: 20100712
  Transmission Date: 20110219
  Serious: No
  Sender: FDA-Public Use
  Company Number: US-BIOGENIDEC-2010BI023396

PATIENT
  Sex: Female

DRUGS (1)
  1. AVONEX [Suspect]
     Indication: MULTIPLE SCLEROSIS
     Route: 030
     Dates: start: 20100514, end: 20100625

REACTIONS (7)
  - DYSMENORRHOEA [None]
  - FEELING COLD [None]
  - FLUID RETENTION [None]
  - HYPERTENSION [None]
  - JOINT SWELLING [None]
  - METRORRHAGIA [None]
  - WEIGHT INCREASED [None]
